FAERS Safety Report 4423166-6 (Version None)
Quarter: 2004Q3

REPORT INFORMATION
  Report Type: 
  Country: None (occurrence: None)
  Receive Date: 20040809
  Receipt Date: 20040726
  Transmission Date: 20050211
  Serious: Yes (Disabling)
  Sender: FDA-Public Use
  Company Number: 2000036374SE

PATIENT
  Age: 78 Year
  Sex: Female
  Weight: 69 kg

DRUGS (1)
  1. CODE BROKEN VS. TAMOXIFEN (COMPARATOR-TAMOXIFEN) (EXEMESTANE VS. TAMOX [Suspect]
     Indication: BREAST CANCER
     Dosage: 20 MG, QD, ORAL
     Route: 048
     Dates: start: 20000525

REACTIONS (2)
  - FALL [None]
  - RADIUS FRACTURE [None]
